FAERS Safety Report 25426359 (Version 2)
Quarter: 2025Q2

REPORT INFORMATION
  Report Type: Report from Study
  Country: US (occurrence: US)
  Receive Date: 20250612
  Receipt Date: 20250617
  Transmission Date: 20250716
  Serious: Yes (Other)
  Sender: UCB
  Company Number: US-UCBSA-2025034277

PATIENT
  Sex: Male

DRUGS (3)
  1. LACOSAMIDE [Suspect]
     Active Substance: LACOSAMIDE
     Indication: Epilepsy
     Dosage: 200 MILLIGRAM, 2X/DAY (BID)
  2. LACOSAMIDE [Suspect]
     Active Substance: LACOSAMIDE
     Dosage: 250 MILLIGRAM, 2X/DAY (BID) (200MG ONE AND HALF TAB BID)
  3. LACOSAMIDE [Suspect]
     Active Substance: LACOSAMIDE
     Dosage: 200MG - ONE AND HALF TAB BID
     Route: 048

REACTIONS (4)
  - Epilepsy [Not Recovered/Not Resolved]
  - Overdose [Unknown]
  - Wrong technique in product usage process [Unknown]
  - Off label use [Unknown]
